FAERS Safety Report 7913963-4 (Version None)
Quarter: 2011Q4

REPORT INFORMATION
  Report Type: 
  Country: None (occurrence: None)
  Receive Date: 20111115
  Receipt Date: 20111104
  Transmission Date: 20120403
  Serious: Yes (Hospitalization)
  Sender: FDA-Public Use
  Company Number: US-ACTELION-A-US2011-54450

PATIENT

DRUGS (5)
  1. COUMADIN [Concomitant]
  2. SILDENAFIL [Concomitant]
  3. CALCIUM CHANNEL BLOCKERS [Concomitant]
  4. EPOPROSTENOL SODIUM [Suspect]
     Indication: PULMONARY ARTERIAL HYPERTENSION
     Dosage: 53 NG/KG, UNK
     Route: 042
     Dates: start: 20110716
  5. TRACLEER [Concomitant]
     Indication: PULMONARY ARTERIAL HYPERTENSION

REACTIONS (1)
  - PNEUMONIA [None]
